FAERS Safety Report 7819582-2 (Version None)
Quarter: 2011Q4

REPORT INFORMATION
  Report Type: 
  Country: None (occurrence: None)
  Receive Date: 20111013
  Receipt Date: 20110927
  Transmission Date: 20120403
  Serious: Yes (Life-Threatening, Hospitalization, Other)
  Sender: FDA-Public Use
  Company Number: CRC-11-239

PATIENT
  Age: 28 Year
  Sex: Female

DRUGS (1)
  1. AMLODIPINE [Suspect]
     Indication: SUICIDE ATTEMPT
     Dosage: TOOK 50 X 5MG TABS; ORAL
     Route: 048

REACTIONS (18)
  - DIZZINESS [None]
  - COUGH [None]
  - PULMONARY OEDEMA [None]
  - HYPOTENSION [None]
  - PERIPHERAL COLDNESS [None]
  - BLOOD LACTIC ACID INCREASED [None]
  - RENAL FAILURE [None]
  - HYPERKALAEMIA [None]
  - TACHYPNOEA [None]
  - HYPOXIA [None]
  - METABOLIC ACIDOSIS [None]
  - LETHARGY [None]
  - PALLOR [None]
  - FLUID OVERLOAD [None]
  - ACUTE RESPIRATORY DISTRESS SYNDROME [None]
  - SUICIDE ATTEMPT [None]
  - OLIGURIA [None]
  - TACHYCARDIA [None]
